FAERS Safety Report 8368403-0 (Version None)
Quarter: 2012Q2

REPORT INFORMATION
  Report Type: 
  Country: None (occurrence: None)
  Receive Date: 20120517
  Receipt Date: 20120504
  Transmission Date: 20120825
  Serious: Yes (Hospitalization, Other)
  Sender: FDA-Public Use
  Company Number: US-ELI_LILLY_AND_COMPANY-US201111008958

PATIENT
  Sex: Female
  Weight: 44.444 kg

DRUGS (24)
  1. FORTEO [Suspect]
     Indication: OSTEOPOROSIS
     Dosage: 20 UG, QD
     Route: 065
     Dates: start: 20110901
  2. ATENOLOL [Concomitant]
     Dosage: 100 MG, QD
     Route: 048
  3. SPIRIVA [Concomitant]
  4. FORTEO [Suspect]
     Dosage: 20 UG, QD
     Route: 065
  5. FORTEO [Suspect]
     Dosage: 20 UG, QD
     Route: 065
  6. FORTEO [Suspect]
     Dosage: 20 UG, QD
     Route: 065
  7. THYROID TAB [Concomitant]
     Dosage: 120 MG, QD
     Route: 048
  8. AMITRIPTYLINE HCL [Concomitant]
  9. VITAMIN D [Concomitant]
  10. TICAGRELOR [Concomitant]
  11. PRAVASTATIN SODIUM [Concomitant]
     Dosage: 20 MG, UNKNOWN
  12. EVISTA [Concomitant]
     Dosage: 60 MG, QD
     Route: 048
  13. VITAMIN D [Concomitant]
     Dosage: 2000 IU, QD
  14. FORTEO [Suspect]
     Dosage: 20 UG, QD
     Route: 065
  15. CALCIUM [Concomitant]
  16. FORTEO [Suspect]
     Dosage: 20 UG, QD
     Route: 065
  17. CYMBALTA [Concomitant]
     Indication: ARTHRITIS
     Dosage: 60 MG, QD
     Route: 048
     Dates: start: 20111001
  18. LISINOPRIL [Concomitant]
  19. LEXAPRO [Concomitant]
     Dosage: 10 MG, QD
     Route: 048
  20. PREDNISONE [Concomitant]
  21. DIFLUNISAL [Concomitant]
  22. ANTIHYPERTENSIVES [Concomitant]
  23. HYDROCODONE BITARTRATE + ACETAMINOPHEN [Concomitant]
     Indication: PAIN
     Dosage: UNK, PRN
  24. CALCIUM CARBONATE [Concomitant]
     Dosage: UNK, QD

REACTIONS (16)
  - DECREASED ACTIVITY [None]
  - HYPOAESTHESIA ORAL [None]
  - MUSCULOSKELETAL PAIN [None]
  - INFECTION [None]
  - HEADACHE [None]
  - HIP FRACTURE [None]
  - HYPOKINESIA [None]
  - RESPIRATORY DISORDER [None]
  - DRUG DOSE OMISSION [None]
  - KIDNEY INFECTION [None]
  - MALAISE [None]
  - DYSPNOEA [None]
  - CYSTITIS [None]
  - CORONARY ARTERY DISEASE [None]
  - PNEUMONIA [None]
  - DENTAL CARE [None]
